FAERS Safety Report 11272093 (Version 2)
Quarter: 2015Q3

REPORT INFORMATION
  Report Type: Spontaneous
  Country: DE (occurrence: None)
  Receive Date: 20150713
  Receipt Date: 20150803
  Transmission Date: 20151125
  Serious: Yes (Life-Threatening)
  Sender: FDA-Public Use
  Company Number: DEP_03153_2015

PATIENT
  Age: 79 Year
  Sex: Female
  Weight: 60.5 kg

DRUGS (6)
  1. VALSACOR [Concomitant]
     Active Substance: VALSARTAN
  2. BISOPROLOL [Concomitant]
     Active Substance: BISOPROLOL
  3. AMLODIPIN [Concomitant]
     Active Substance: AMLODIPINE BESYLATE
  4. PALEXIA [Suspect]
     Active Substance: TAPENTADOL HYDROCHLORIDE
     Indication: PRODUCT USED FOR UNKNOWN INDICATION
     Route: 048
     Dates: start: 20150429
  5. TENSOFLUX [Concomitant]
  6. METFORMIN [Concomitant]
     Active Substance: METFORMIN HYDROCHLORIDE

REACTIONS (2)
  - Blood pressure increased [None]
  - Restlessness [None]

NARRATIVE: CASE EVENT DATE: 20150502
